FAERS Safety Report 18718254 (Version 1)
Quarter: 2021Q1

REPORT INFORMATION
  Report Type: Other
  Country: US (occurrence: US)
  Receive Date: 20210108
  Receipt Date: 20210108
  Transmission Date: 20210419
  Serious: Yes (Hospitalization, Other)
  Sender: FDA-Public Use
  Company Number: US-AVONDALE PHARMACEUTICALS, LLC-2104123

PATIENT
  Age: 62 Year
  Sex: Male

DRUGS (1)
  1. MOBIC [Suspect]
     Active Substance: MELOXICAM
     Indication: BACK PAIN
     Route: 065

REACTIONS (3)
  - Haemoglobin decreased [Unknown]
  - Lower gastrointestinal haemorrhage [Unknown]
  - Gastrointestinal disorder [Unknown]
